FAERS Safety Report 14999007 (Version 1)
Quarter: 2018Q2

REPORT INFORMATION
  Report Type: Report from Study
  Country: IT (occurrence: IT)
  Receive Date: 20180612
  Receipt Date: 20180612
  Transmission Date: 20180711
  Serious: Yes (Hospitalization)
  Sender: FDA-Public Use
  Company Number: IT-TEVA-2018-IT-904224

PATIENT
  Age: 54 Year
  Sex: Male

DRUGS (9)
  1. TRIVALENT INACTIVATED SUBUNIT INFLUENZA VIRUS VACCINE [Interacting]
     Active Substance: INFLUENZA VIRUS VACCINE TRIVALENT TYPE A+B
     Indication: IMMUNISATION
     Route: 065
  2. CICLOSPORIN [Interacting]
     Active Substance: CYCLOSPORINE
     Route: 065
  3. WARFARIN [Interacting]
     Active Substance: WARFARIN
     Route: 065
  4. ATENOLOL. [Concomitant]
     Active Substance: ATENOLOL
     Route: 065
  5. SIMVASTATIN. [Interacting]
     Active Substance: SIMVASTATIN
     Route: 065
  6. OMEPRAZOLE. [Suspect]
     Active Substance: OMEPRAZOLE
     Route: 065
  7. PREDNISOLONE. [Interacting]
     Active Substance: PREDNISOLONE
     Route: 065
  8. SIROLIMUS. [Interacting]
     Active Substance: SIROLIMUS
     Route: 065
  9. DOXAZOSIN [Concomitant]
     Active Substance: DOXAZOSIN\DOXAZOSIN MESYLATE
     Route: 065

REACTIONS (5)
  - Rhabdomyolysis [Unknown]
  - Rhinitis [Unknown]
  - Anuria [Unknown]
  - Pharyngitis [Unknown]
  - Drug interaction [Unknown]
